FAERS Safety Report 8017143-6 (Version None)
Quarter: 2012Q1

REPORT INFORMATION
  Report Type: 
  Country: None (occurrence: None)
  Receive Date: 20120102
  Receipt Date: 20111219
  Transmission Date: 20120608
  Serious: Yes (Life-Threatening, Other)
  Sender: FDA-Public Use
  Company Number: KR-ROCHE-1025478

PATIENT

DRUGS (4)
  1. CETUXIMAB [Suspect]
     Dosage: D1, 8,15,22,29
  2. XELODA [Suspect]
     Indication: RECTAL CANCER
     Dosage: D1-38, 5 DAYS A WEEK
  3. IRINOTECAN HCL [Suspect]
     Indication: RECTAL CANCER
     Dosage: ON D1, 8, 15, 22 AND 29
  4. CETUXIMAB [Suspect]
     Indication: RECTAL CANCER
     Dosage: DAY -6

REACTIONS (11)
  - FATIGUE [None]
  - ANAEMIA [None]
  - DIARRHOEA [None]
  - LEUKOPENIA [None]
  - RASH [None]
  - ILEUS [None]
  - PYREXIA [None]
  - HYPONATRAEMIA [None]
  - PROCTALGIA [None]
  - PERITONSILLAR ABSCESS [None]
  - NEUTROPENIA [None]
